FAERS Safety Report 7171252-2 (Version None)
Quarter: 2010Q4

REPORT INFORMATION
  Report Type: 
  Country: None (occurrence: None)
  Receive Date: 20101217
  Receipt Date: 20101209
  Transmission Date: 20110411
  Serious: Yes (Hospitalization)
  Sender: FDA-Public Use
  Company Number: US-PURDUE-USA-2010-0058534

PATIENT
  Sex: Male

DRUGS (2)
  1. OXYCONTIN [Suspect]
     Indication: PRODUCT USED FOR UNKNOWN INDICATION
     Dosage: 80 MG, SEE TEXT
     Dates: start: 20100901
  2. OXYCONTIN [Suspect]
     Dosage: UNK
     Dates: start: 20100901

REACTIONS (3)
  - ASTHENIA [None]
  - HERPES ZOSTER [None]
  - VOMITING [None]
